FAERS Safety Report 18325518 (Version 2)
Quarter: 2021Q1

REPORT INFORMATION
  Report Type: Spontaneous
  Country: US (occurrence: US)
  Receive Date: 20200929
  Receipt Date: 20210113
  Transmission Date: 20210419
  Serious: No
  Sender: FDA-Public Use
  Company Number: US-SA-2020SA266100

PATIENT
  Age: 61 Year
  Sex: Male

DRUGS (3)
  1. MUCINEX [Concomitant]
     Active Substance: GUAIFENESIN
  2. DUPIXENT [Suspect]
     Active Substance: DUPILUMAB
     Dosage: 300 MG, QOW
     Route: 058
  3. VITAMIN C [ASCORBIC ACID;BIOFLAVONOIDS NOS] [Concomitant]

REACTIONS (2)
  - Headache [Unknown]
  - Sinus congestion [Unknown]

NARRATIVE: CASE EVENT DATE: 20200924
